FAERS Safety Report 6147375-3 (Version None)
Quarter: 2009Q2

REPORT INFORMATION
  Report Type: 
  Country: None (occurrence: None)
  Receive Date: 20090408
  Receipt Date: 20090330
  Transmission Date: 20091009
  Serious: Yes (Other)
  Sender: FDA-Public Use
  Company Number: US-PFIZER INC-2009187143

PATIENT
  Age: 19 Year
  Sex: Male

DRUGS (2)
  1. XANAX [Suspect]
     Dosage: UNK
     Route: 055
     Dates: start: 20090214
  2. OXYMORPHONE [Suspect]
     Dosage: UNK
     Route: 055
     Dates: start: 20090214

REACTIONS (3)
  - DRUG ABUSE [None]
  - DRUG DIVERSION [None]
  - INCORRECT ROUTE OF DRUG ADMINISTRATION [None]
